FAERS Safety Report 23658504 (Version 3)
Quarter: 2024Q1

REPORT INFORMATION
  Report Type: Other
  Country: US (occurrence: US)
  Receive Date: 20240321
  Receipt Date: 20240322
  Transmission Date: 20240409
  Serious: Yes (Other)
  Sender: FDA-Public Use
  Company Number: US-HLS-202400079

PATIENT
  Age: 85 Year
  Sex: Male

DRUGS (5)
  1. CLOZAPINE [Suspect]
     Active Substance: CLOZAPINE
     Indication: Parkinson^s disease psychosis
     Dosage: 62.5 MG DAILY
     Route: 065
  2. RASAGILINE [Suspect]
     Active Substance: RASAGILINE\RASAGILINE MESYLATE
     Indication: Product used for unknown indication
     Route: 065
  3. DESVENLAFAXINE SUCCINATE [Suspect]
     Active Substance: DESVENLAFAXINE SUCCINATE
     Indication: Product used for unknown indication
     Route: 065
  4. DONEPEZIL [Suspect]
     Active Substance: DONEPEZIL
     Indication: Product used for unknown indication
     Route: 065
  5. CARBIDOPA\LEVODOPA [Suspect]
     Active Substance: CARBIDOPA\LEVODOPA
     Indication: Product used for unknown indication
     Route: 065

REACTIONS (10)
  - Tremor [Unknown]
  - Bradykinesia [Unknown]
  - Bradyphrenia [Unknown]
  - Jealous delusion [Unknown]
  - Dysphonia [Unknown]
  - Reduced facial expression [Unknown]
  - Off label use [Unknown]
  - Gait disturbance [Unknown]
  - Thrombocytopenia [Unknown]
  - Hallucination, visual [Unknown]
